FAERS Safety Report 6438736-3 (Version None)
Quarter: 2009Q4

REPORT INFORMATION
  Report Type: 
  Country: None (occurrence: None)
  Receive Date: 20091113
  Receipt Date: 20090930
  Transmission Date: 20100525
  Serious: Yes (Hospitalization, Other)
  Sender: FDA-Public Use
  Company Number: IR-RANBAXY-2009US-24982

PATIENT

DRUGS (1)
  1. NITROFURANTOIN MONOHYDRATE/MACROCRYSTALS [Suspect]
     Indication: URINARY TRACT INFECTION
     Dosage: 200 MG/DL , UNK

REACTIONS (12)
  - ASTHENIA [None]
  - BLOOD CREATININE DECREASED [None]
  - HYPOREFLEXIA [None]
  - LIMB DEFORMITY [None]
  - MUSCLE ATROPHY [None]
  - MUSCLE CONTRACTURE [None]
  - NEUROGENIC BLADDER [None]
  - NEUROPATHY PERIPHERAL [None]
  - OBSTRUCTIVE UROPATHY [None]
  - PARAESTHESIA [None]
  - URINARY RETENTION [None]
  - URINARY TRACT INFECTION [None]
